FAERS Safety Report 12422977 (Version 1)
Quarter: 2016Q2

REPORT INFORMATION
  Report Type: Spontaneous
  Country: US (occurrence: US)
  Receive Date: 20160601
  Receipt Date: 20160601
  Transmission Date: 20160815
  Serious: Yes (Hospitalization, Other)
  Sender: FDA-Public Use
  Company Number: US-SUN PHARMACEUTICAL INDUSTRIES LTD-2016US-117432

PATIENT
  Sex: Male

DRUGS (1)
  1. ABSORICA [Suspect]
     Active Substance: ISOTRETINOIN
     Indication: PRODUCT USED FOR UNKNOWN INDICATION
     Dosage: UNK
     Route: 065
     Dates: start: 20150916, end: 20160309

REACTIONS (5)
  - Abdominal pain upper [Unknown]
  - Depression [Unknown]
  - Mood swings [Unknown]
  - Headache [Unknown]
  - Disturbance in attention [Unknown]

NARRATIVE: CASE EVENT DATE: 2016
